FAERS Safety Report 10959292 (Version 1)
Quarter: 2015Q1

REPORT INFORMATION
  Report Type: Spontaneous
  Country: US (occurrence: US)
  Receive Date: 20150327
  Receipt Date: 20150327
  Transmission Date: 20150721
  Serious: Yes (Death)
  Sender: FDA-Public Use
  Company Number: US-CIPLA LTD.-2015US02386

PATIENT

DRUGS (3)
  1. PAROXETINE [Suspect]
     Active Substance: PAROXETINE\PAROXETINE HYDROCHLORIDE
  2. QUETIAPINE [Suspect]
     Active Substance: QUETIAPINE
  3. LAMOTRIGINE. [Suspect]
     Active Substance: LAMOTRIGINE

REACTIONS (1)
  - Completed suicide [Fatal]
